FAERS Safety Report 10193264 (Version 1)
Quarter: 2014Q2

REPORT INFORMATION
  Report Type: Spontaneous
  Country: US (occurrence: US)
  Receive Date: 20140524
  Receipt Date: 20140524
  Transmission Date: 20141212
  Serious: No
  Sender: FDA-Public Use
  Company Number: US-SA-2013SA120417

PATIENT
  Age: 71 Year
  Sex: Female

DRUGS (2)
  1. LANTUS SOLOSTAR [Suspect]
     Indication: PRODUCT USED FOR UNKNOWN INDICATION
     Dosage: DOSE:35 UNIT(S)
     Route: 051
     Dates: start: 201203
  2. SOLOSTAR [Concomitant]
     Dates: start: 201203

REACTIONS (2)
  - Malaise [Unknown]
  - Drug ineffective [Unknown]
